FAERS Safety Report 6449474-5 (Version None)
Quarter: 2009Q4

REPORT INFORMATION
  Report Type: 
  Country: None (occurrence: None)
  Receive Date: 20091120
  Receipt Date: 20081206
  Transmission Date: 20100525
  Serious: Yes (Other)
  Sender: FDA-Public Use
  Company Number: US-AMGEN-QUU322653

PATIENT
  Sex: Female

DRUGS (2)
  1. ENBREL [Suspect]
     Indication: PSORIATIC ARTHROPATHY
     Route: 058
     Dates: start: 20080401
  2. ENBREL [Suspect]
     Indication: RHEUMATOID ARTHRITIS

REACTIONS (8)
  - ARTHRALGIA [None]
  - ASTHENIA [None]
  - BACK PAIN [None]
  - DECREASED APPETITE [None]
  - DEPRESSION [None]
  - GAIT DISTURBANCE [None]
  - PAIN IN EXTREMITY [None]
  - PALLOR [None]
